FAERS Safety Report 8231204-8 (Version None)
Quarter: 2012Q1

REPORT INFORMATION
  Report Type: 
  Country: None (occurrence: None)
  Receive Date: 20120323
  Receipt Date: 20120323
  Transmission Date: 20120608
  Serious: Yes (Hospitalization)
  Sender: FDA-Public Use
  Company Number: None

PATIENT
  Age: 55 Year
  Sex: Male
  Weight: 113.39 kg

DRUGS (11)
  1. COREG [Concomitant]
     Route: 048
  2. IMDUR [Concomitant]
  3. NITROGLYCERIN [Concomitant]
  4. PLAVIX [Concomitant]
  5. RIBAVIRIN [Concomitant]
     Indication: HEPATITIS C
     Dosage: 400MG
     Route: 048
     Dates: start: 20111019, end: 20120116
  6. FUROSEMIDE [Concomitant]
  7. PEGASYS [Suspect]
     Indication: HEPATITIS C
     Dosage: 180MCG
     Route: 058
     Dates: start: 20111019, end: 20120116
  8. LISINOPRI [Concomitant]
     Route: 048
  9. ASPIRIN [Concomitant]
     Route: 048
  10. AMBIEN [Concomitant]
  11. OXYCODONE HCL [Concomitant]

REACTIONS (1)
  - CARDIAC DISORDER [None]
